FAERS Safety Report 7510550-7 (Version None)
Quarter: 2011Q2

REPORT INFORMATION
  Report Type: 
  Country: None (occurrence: None)
  Receive Date: 20110530
  Receipt Date: 20110520
  Transmission Date: 20111010
  Serious: Yes (Death, Other)
  Sender: FDA-Public Use
  Company Number: US-BIOGENIDEC-2010BI025873

PATIENT
  Sex: Female

DRUGS (2)
  1. AVONEX [Suspect]
     Indication: MULTIPLE SCLEROSIS
     Route: 030
     Dates: start: 19980401
  2. AVONEX [Suspect]
     Route: 030
     Dates: end: 20050501

REACTIONS (4)
  - PULMONARY EMBOLISM [None]
  - BLOOD CANNABINOIDS INCREASED [None]
  - MYOCARDIAL INFARCTION [None]
  - AMPHETAMINES POSITIVE [None]
